FAERS Safety Report 7406374-1 (Version None)
Quarter: 2011Q2

REPORT INFORMATION
  Report Type: 
  Country: None (occurrence: None)
  Receive Date: 20110411
  Receipt Date: 20110404
  Transmission Date: 20111010
  Serious: Yes (Life-Threatening, Hospitalization, Other)
  Sender: FDA-Public Use
  Company Number: US-JNJFOC-20110202542

PATIENT
  Sex: Female

DRUGS (3)
  1. DURAGESIC [Suspect]
     Dosage: 4-5 PATCHES
     Route: 062
  2. DURAGESIC [Suspect]
     Indication: PAIN MANAGEMENT
     Dosage: 3 PATCHES
     Route: 062
  3. DURAGESIC [Suspect]
     Dosage: 2 PATCHES FOR 1 WEEK
     Route: 062

REACTIONS (7)
  - DRUG EFFECT DECREASED [None]
  - PNEUMONIA ASPIRATION [None]
  - AMNESIA [None]
  - UNRESPONSIVE TO STIMULI [None]
  - COMA [None]
  - DRUG DOSE OMISSION [None]
  - PRODUCT QUALITY ISSUE [None]
